FAERS Safety Report 5104627-3 (Version None)
Quarter: 2006Q3

REPORT INFORMATION
  Report Type: 
  Country: None (occurrence: None)
  Receive Date: 20060912
  Receipt Date: 20060912
  Transmission Date: 20061208
  Serious: Yes (Hospitalization)
  Sender: FDA-Public Use
  Company Number: None

PATIENT
  Sex: Male
  Weight: 12.6 kg

DRUGS (8)
  1. PEG-L-ASPARAGINASE (K-H) [Suspect]
     Dosage: 14000 UNIT
  2. VINCRISTINE SULFATE [Suspect]
     Dosage: 3.36 MG
  3. DEXAMETHASONE TAB [Suspect]
     Dosage: SEE IMAGE
  4. BACTRIM [Concomitant]
  5. HYDROXYZINE SUSPENSION [Concomitant]
  6. MIRALAX [Concomitant]
  7. ONDANSETRON LIQUID [Concomitant]
  8. PEPCID [Concomitant]

REACTIONS (6)
  - CARDIO-RESPIRATORY ARREST [None]
  - COLITIS [None]
  - INTESTINAL PERFORATION [None]
  - NEUTROPENIA [None]
  - PERITONITIS [None]
  - PYREXIA [None]
